FAERS Safety Report 5885514-X (Version None)
Quarter: 2008Q3

REPORT INFORMATION
  Report Type: 
  Country: None (occurrence: None)
  Receive Date: 20080915
  Receipt Date: 20080915
  Transmission Date: 20090109
  Serious: No
  Sender: FDA-Public Use
  Company Number: None

PATIENT
  Sex: Female

DRUGS (2)
  1. CIPROFLOXACIN [Suspect]
     Dosage: TABLET 750 MG
  2. LEVAQUIN [Suspect]
     Dosage: TABLET 750 MG

REACTIONS (4)
  - DRUG DISPENSING ERROR [None]
  - INAPPROPRIATE SCHEDULE OF DRUG ADMINISTRATION [None]
  - MEDICATION ERROR [None]
  - WRONG DRUG ADMINISTERED [None]
